FAERS Safety Report 24681424 (Version 1)
Quarter: 2024Q4

REPORT INFORMATION
  Report Type: Report from Study
  Country: CA (occurrence: CA)
  Receive Date: 20241129
  Receipt Date: 20241129
  Transmission Date: 20250114
  Serious: Yes (Other)
  Sender: ABBVIE
  Company Number: CA-ABBVIE-6023229

PATIENT
  Sex: Male

DRUGS (1)
  1. LUPRON [Suspect]
     Active Substance: LEUPROLIDE ACETATE
     Indication: Prostate cancer
     Route: 030
     Dates: start: 20221208

REACTIONS (3)
  - Arterial occlusive disease [Not Recovered/Not Resolved]
  - Arterial injury [Not Recovered/Not Resolved]
  - Heart valve incompetence [Not Recovered/Not Resolved]
